FAERS Safety Report 20221699 (Version 2)
Quarter: 2022Q1

REPORT INFORMATION
  Report Type: Spontaneous
  Country: US (occurrence: US)
  Receive Date: 20211223
  Receipt Date: 20220106
  Transmission Date: 20220423
  Serious: Yes (Other)
  Sender: FDA-Public Use
  Company Number: US-009507513-2112USA007708

PATIENT
  Age: 68 Year
  Sex: Male

DRUGS (2)
  1. KEYTRUDA [Suspect]
     Active Substance: PEMBROLIZUMAB
     Indication: Metastatic malignant melanoma
     Dosage: 200 MILLIGRAM, EVERY 3 WEEKS
  2. INDOXIMOD [Concomitant]
     Active Substance: INDOXIMOD
     Dosage: UNK

REACTIONS (2)
  - Warm type haemolytic anaemia [Recovered/Resolved]
  - Warm type haemolytic anaemia [Recovered/Resolved with Sequelae]
